FAERS Safety Report 21411191 (Version 1)
Quarter: 2022Q4

REPORT INFORMATION
  Report Type: Spontaneous
  Country: US (occurrence: US)
  Receive Date: 20221005
  Receipt Date: 20221005
  Transmission Date: 20230112
  Serious: No
  Sender: FDA-Public Use
  Company Number: US-BAYER-2022A134038

PATIENT
  Age: 88 Year
  Sex: Female

DRUGS (3)
  1. ASTEPRO [Suspect]
     Active Substance: AZELASTINE HYDROCHLORIDE
     Indication: Prophylaxis
     Dosage: 2 DF EACH NOSTRIL
     Route: 045
     Dates: start: 20220921, end: 20220921
  2. BAYER LOW DOSE [Suspect]
     Active Substance: ASPIRIN
     Indication: Prophylaxis
     Dosage: 81 MG, QD
     Route: 048
  3. LEVOTHYROXINE [Concomitant]
     Active Substance: LEVOTHYROXINE
     Indication: Prophylaxis
     Dosage: 62 G, QD
     Route: 048

REACTIONS (5)
  - Adverse drug reaction [Recovering/Resolving]
  - Product use in unapproved indication [None]
  - Oropharyngeal discomfort [Recovering/Resolving]
  - Nasal discomfort [Recovering/Resolving]
  - Ocular discomfort [Recovering/Resolving]

NARRATIVE: CASE EVENT DATE: 20220921
